FAERS Safety Report 25199087 (Version 1)
Quarter: 2025Q2

REPORT INFORMATION
  Report Type: Report from Study
  Country: CL (occurrence: CL)
  Receive Date: 20250415
  Receipt Date: 20250415
  Transmission Date: 20250717
  Serious: Yes (Hospitalization)
  Sender: SANDOZ
  Company Number: CL-SANDOZ-SDZ2025CL023070

PATIENT
  Sex: Male

DRUGS (1)
  1. HYRIMOZ [Suspect]
     Active Substance: ADALIMUMAB-ADAZ
     Indication: Crohn^s disease
     Dosage: UNK, Q2W
     Route: 058
     Dates: start: 20230717

REACTIONS (4)
  - Stress [Unknown]
  - Gastrointestinal inflammation [Unknown]
  - Drug ineffective [Unknown]
  - Malaise [Unknown]
